FAERS Safety Report 8018280-2 (Version None)
Quarter: 2011Q4

REPORT INFORMATION
  Report Type: 
  Country: None (occurrence: None)
  Receive Date: 20111227
  Receipt Date: 20111213
  Transmission Date: 20120403
  Serious: Yes (Hospitalization, Other)
  Sender: FDA-Public Use
  Company Number: CIP11001738

PATIENT
  Age: 46 Year
  Sex: Female
  Weight: 111.4 kg

DRUGS (48)
  1. PREDNISONE TAB [Concomitant]
  2. HYDROCODONE W/APAP (HYDROCODONE, PARACETAMOL) [Concomitant]
  3. LEXAPRO [Concomitant]
  4. AMBIEN [Concomitant]
  5. ALPRAZOLAM [Concomitant]
  6. TRIAMCINOLONE [Concomitant]
  7. MEDROXYPROGEST (MEDROXYPROGESTERONE ACETATE) [Concomitant]
  8. DEHYDROEPIANDROSTERONE (PRASTERONE) [Concomitant]
  9. RELPAX [Concomitant]
  10. MOBIC [Concomitant]
  11. ADVAIR HFA [Concomitant]
  12. NEXIUM [Concomitant]
  13. AZATHIOPRINE [Concomitant]
  14. BUPROPION HCL [Concomitant]
  15. METOCLOPRAMIDE HCL [Concomitant]
  16. NORCO [Concomitant]
  17. RECLAST [Suspect]
     Indication: OSTEOPOROSIS
     Dosage: OTHER
     Route: 050
     Dates: start: 20100201, end: 20100201
  18. TOPROL-XL [Concomitant]
  19. TRIAMTERENE AND HYDROCHLOROTHIAZIDE [Concomitant]
  20. FLUCONAZOLE [Concomitant]
  21. FORTICAL /00108001/ (CALCIUM CARBONATE) [Concomitant]
  22. FLEXERIL /00428402/ (CYCLOBENZAPRINE HYDROCHLORIDE) [Concomitant]
  23. LIDOCAINE [Concomitant]
  24. BONIVA [Suspect]
     Dosage: 150 MG ONCE WEEKLY
     Dates: start: 20061101, end: 20070403
  25. FORTEO [Suspect]
     Dosage: OTHER
     Route: 050
     Dates: start: 20080410
  26. LEVAQUIN [Concomitant]
  27. PROMETHAZINE [Concomitant]
  28. GABAPENTIN [Concomitant]
  29. HYDROXYCHLOROQUINE (HYDROXYCHLOROQUINE SULFATE) [Concomitant]
  30. TOPAMAX [Concomitant]
  31. TRIMETHOBENZAMIDE (TRIMETHOBENZAMIDE) [Concomitant]
  32. FOLIC ACID [Concomitant]
  33. DROCON-CS (BROMPHENIRAMINE MALEATE, HYDROCODONE BITARTRATE, PSEUDOEPHE [Concomitant]
  34. FROVATRIPTAN SUCCINATE [Concomitant]
  35. ACTONEL [Suspect]
     Dosage: 25 MG, 1/WEEK, ORAL
     Route: 048
     Dates: start: 20040831, end: 20061030
  36. MAXALT /01406501/ (RIZATRIPTAN) [Concomitant]
  37. AMOXICILLIN AND CLAVULANATE POTASSIOUM (AMOXICILLIN TRIHYDRATE, CLAVUL [Concomitant]
  38. ZITHROMAX [Concomitant]
  39. PRAVACHOL (PRAVASTATIN SODIUIM) [Concomitant]
  40. PREVACID [Concomitant]
  41. PROCHLORPERAZINE MALEATE [Concomitant]
  42. ASPIRIN [Concomitant]
  43. PROMETRIUM /00110701/ (PROGESTERONE) [Concomitant]
  44. CIPROFLOXACIN [Concomitant]
  45. MECLIZINE /00072801/ (MECLOZINE) [Concomitant]
  46. TIZANIDINE HCL [Concomitant]
  47. METHOTREXATE [Concomitant]
  48. PLAQUENIL [Concomitant]

REACTIONS (17)
  - CONDITION AGGRAVATED [None]
  - BACK PAIN [None]
  - ARTHRALGIA [None]
  - SYSTEMIC LUPUS ERYTHEMATOSUS [None]
  - FEMUR FRACTURE [None]
  - FALL [None]
  - GASTROINTESTINAL TRACT IRRITATION [None]
  - OSTEOMALACIA [None]
  - BEDRIDDEN [None]
  - COMMINUTED FRACTURE [None]
  - PAIN IN EXTREMITY [None]
  - DYSSTASIA [None]
  - IATROGENIC INJURY [None]
  - GASTROOESOPHAGEAL REFLUX DISEASE [None]
  - BONE LOSS [None]
  - BURSITIS [None]
  - STRESS FRACTURE [None]
